FAERS Safety Report 10712878 (Version 1)
Quarter: 2015Q1

REPORT INFORMATION
  Report Type: Spontaneous
  Country: US (occurrence: None)
  Receive Date: 20150114
  Receipt Date: 20150114
  Transmission Date: 20150721
  Serious: Yes (Disabling)
  Sender: FDA-Public Use
  Company Number: None

PATIENT
  Age: 70 Year
  Sex: Female
  Weight: 68.04 kg

DRUGS (1)
  1. CORTICOSTEROID [Suspect]
     Active Substance: CORTICOSTEROID NOS

REACTIONS (15)
  - Pain in extremity [None]
  - Anosmia [None]
  - Insomnia [None]
  - Ageusia [None]
  - Paraesthesia [None]
  - Hypoaesthesia [None]
  - Treatment failure [None]
  - Hyperaesthesia [None]
  - Burning sensation [None]
  - Procedural pain [None]
  - Gait disturbance [None]
  - Dizziness [None]
  - Pain [None]
  - Arthralgia [None]
  - Back pain [None]

NARRATIVE: CASE EVENT DATE: 20140401
